FAERS Safety Report 4495576-2 (Version None)
Quarter: 2004Q4

REPORT INFORMATION
  Report Type: 
  Country: None (occurrence: None)
  Receive Date: 20041108
  Receipt Date: 20041029
  Transmission Date: 20050328
  Serious: Yes (Hospitalization)
  Sender: FDA-Public Use
  Company Number: FR-ROCHE-384996

PATIENT
  Age: 17 Year
  Sex: Male
  Weight: 60 kg

DRUGS (2)
  1. VALIUM [Suspect]
     Route: 048
     Dates: start: 20031107, end: 20040830
  2. TEGRETOL [Suspect]
     Route: 048
     Dates: start: 20040824, end: 20040830

REACTIONS (3)
  - HYPERTHERMIA [None]
  - RASH [None]
  - URTICARIA [None]
